FAERS Safety Report 8296630-X (Version None)
Quarter: 2012Q2

REPORT INFORMATION
  Report Type: 
  Country: None (occurrence: None)
  Receive Date: 20120418
  Receipt Date: 20120418
  Transmission Date: 20120825
  Serious: Yes (Other)
  Sender: FDA-Public Use
  Company Number: None

PATIENT
  Age: 58 Year
  Sex: Female
  Weight: 81.646 kg

DRUGS (1)
  1. SIMVASTATIN [Suspect]
     Indication: HYPERLIPIDAEMIA
     Dosage: 1 TAB
     Route: 048

REACTIONS (6)
  - EXERCISE TOLERANCE DECREASED [None]
  - PAIN IN EXTREMITY [None]
  - ASTHENIA [None]
  - WEIGHT INCREASED [None]
  - GAIT DISTURBANCE [None]
  - HYPOAESTHESIA [None]
